FAERS Safety Report 4544171-5 (Version None)
Quarter: 2005Q1

REPORT INFORMATION
  Report Type: 
  Country: None (occurrence: None)
  Receive Date: 20050104
  Receipt Date: 20041208
  Transmission Date: 20050727
  Serious: Yes (Life-Threatening, Hospitalization)
  Sender: FDA-Public Use
  Company Number: PHNU2004PL04136

PATIENT
  Age: 7 Month
  Sex: Female
  Weight: 50 kg

DRUGS (3)
  1. TRILEPTAL [Suspect]
     Indication: EPILEPSY
     Dosage: 1800 MG/D
     Dates: start: 20040915, end: 20040924
  2. AMIZEPIN [Concomitant]
     Dates: start: 19990101, end: 20010901
  3. NEURONTIN [Concomitant]
     Dates: start: 20030723, end: 20040708

REACTIONS (7)
  - CONVULSION [None]
  - DIPLOPIA [None]
  - HYPONATRAEMIA [None]
  - NAUSEA [None]
  - STATUS EPILEPTICUS [None]
  - VIRAL INFECTION [None]
  - VOMITING [None]
